FAERS Safety Report 16214772 (Version 1)
Quarter: 2019Q2

REPORT INFORMATION
  Report Type: Spontaneous
  Country: BR (occurrence: BR)
  Receive Date: 20190418
  Receipt Date: 20190418
  Transmission Date: 20190711
  Serious: Yes (Hospitalization, Other)
  Sender: FDA-Public Use
  Company Number: BR-BIOMARINAP-BR-2019-123172

PATIENT
  Sex: Male
  Weight: 26 kg

DRUGS (2)
  1. NAGLAZYME [Suspect]
     Active Substance: GALSULFASE
     Indication: MUCOPOLYSACCHARIDOSIS VI
     Dosage: UNK UNK, QW
     Route: 042
     Dates: start: 20110119
  2. RISPERIDONE. [Concomitant]
     Active Substance: RISPERIDONE
     Indication: CONFUSIONAL STATE
     Dosage: 50 MILLIGRAM

REACTIONS (2)
  - Gait inability [Not Recovered/Not Resolved]
  - Atrophy [Not Recovered/Not Resolved]
